FAERS Safety Report 19164845 (Version 5)
Quarter: 2021Q2

REPORT INFORMATION
  Report Type: Spontaneous
  Country: US (occurrence: US)
  Receive Date: 20210421
  Receipt Date: 20210612
  Transmission Date: 20210717
  Serious: No
  Sender: FDA-Public Use
  Company Number: US-BIOGEN-2021BI00997031

PATIENT
  Age: 49 Year
  Sex: Female

DRUGS (4)
  1. VUMERITY [Suspect]
     Active Substance: DIROXIMEL FUMARATE
     Route: 048
     Dates: start: 20210413
  2. VUMERITY [Suspect]
     Active Substance: DIROXIMEL FUMARATE
     Dosage: MAINTENANCE DOSE
     Route: 048
     Dates: start: 20210403, end: 20210425
  3. VUMERITY [Suspect]
     Active Substance: DIROXIMEL FUMARATE
     Route: 048
  4. VUMERITY [Suspect]
     Active Substance: DIROXIMEL FUMARATE
     Indication: MULTIPLE SCLEROSIS
     Route: 048
     Dates: start: 20210327, end: 20210402

REACTIONS (10)
  - Cognitive disorder [Unknown]
  - Fatigue [Unknown]
  - Affect lability [Recovered/Resolved]
  - Bone pain [Not Recovered/Not Resolved]
  - Mood swings [Unknown]
  - Urticaria [Unknown]
  - Gastric disorder [Unknown]
  - Multiple sclerosis relapse [Not Recovered/Not Resolved]
  - Hot flush [Unknown]
  - Spinal pain [Not Recovered/Not Resolved]

NARRATIVE: CASE EVENT DATE: 2021
